FAERS Safety Report 9249737 (Version 3)
Quarter: 2013Q2

REPORT INFORMATION
  Report Type: Spontaneous
  Country: DK (occurrence: JP)
  Receive Date: 20130423
  Receipt Date: 20130507
  Transmission Date: 20140414
  Serious: Yes (Other)
  Sender: FDA-Public Use
  Company Number: JP-FRI-1000044538

PATIENT
  Age: 71 Year
  Sex: Female

DRUGS (8)
  1. LEXAPRO [Suspect]
     Indication: DEPRESSION
     Dosage: 10 MG
     Route: 048
     Dates: start: 20130329, end: 20130402
  2. SELENICA-R [Concomitant]
     Indication: EPILEPSY
     Dosage: 400 MG
     Route: 048
  3. LIPITOR [Concomitant]
     Indication: HYPERLIPIDAEMIA
     Dosage: 10 MG
     Route: 048
     Dates: start: 20130329
  4. THYRADIN S [Concomitant]
     Indication: HYPOTHYROIDISM
     Dosage: 50 MG
     Route: 048
     Dates: start: 20130329
  5. SYMBICORT [Concomitant]
     Indication: ASTHMA
  6. MOSAPRIDE [Concomitant]
     Indication: GASTRITIS
     Dosage: 15 MG
     Route: 048
  7. LAC-B [Concomitant]
     Dosage: 30 MG
     Route: 048
  8. MAGLAX [Concomitant]
     Indication: CONSTIPATION
     Dosage: 990 MG
     Route: 048

REACTIONS (1)
  - Convulsion [Recovered/Resolved]
